FAERS Safety Report 14902253 (Version 1)
Quarter: 2018Q2

REPORT INFORMATION
  Report Type: Spontaneous
  Country: EE (occurrence: EE)
  Receive Date: 20180516
  Receipt Date: 20180516
  Transmission Date: 20180711
  Serious: Yes (Hospitalization)
  Sender: FDA-Public Use
  Company Number: EE-PFIZER INC-2018136876

PATIENT
  Age: 61 Year
  Sex: Female
  Weight: 73 kg

DRUGS (3)
  1. VOTRIENT [Concomitant]
     Active Substance: PAZOPANIB HYDROCHLORIDE
     Indication: RENAL CANCER
     Dosage: 800 MG, 1X/DAY
     Route: 048
     Dates: start: 20170718, end: 20170925
  2. SUNITINIB [Concomitant]
     Active Substance: SUNITINIB
     Indication: RENAL CANCER
     Dosage: UNK
     Route: 048
     Dates: start: 20170503, end: 20171031
  3. INLYTA [Suspect]
     Active Substance: AXITINIB
     Indication: RENAL CANCER
     Dosage: 5 MG, 2X/DAY (EVERY 12 HOURS)
     Route: 048
     Dates: start: 20171016, end: 20171031

REACTIONS (3)
  - Posterior reversible encephalopathy syndrome [Recovered/Resolved]
  - Hypertension [Recovered/Resolved]
  - Epilepsy [Unknown]

NARRATIVE: CASE EVENT DATE: 201710
